FAERS Safety Report 18156580 (Version 1)
Quarter: 2020Q3

REPORT INFORMATION
  Report Type: Spontaneous
  Country: US (occurrence: US)
  Receive Date: 20200816
  Receipt Date: 20200816
  Transmission Date: 20201103
  Serious: Yes (Congenital Anomaly, Other)
  Sender: FDA-Public Use
  Company Number: None

PATIENT
  Age: 32 Year
  Sex: Female
  Weight: 63 kg

DRUGS (1)
  1. NEXPLANON [Suspect]
     Active Substance: ETONOGESTREL
     Indication: CONTRACEPTION
     Dosage: ?          QUANTITY:1 IMPLANT;?

REACTIONS (4)
  - Menstruation irregular [None]
  - Polymenorrhoea [None]
  - Twin pregnancy [None]
  - Hormone level abnormal [None]

NARRATIVE: CASE EVENT DATE: 20191004
